FAERS Safety Report 17600468 (Version 3)
Quarter: 2020Q2

REPORT INFORMATION
  Report Type: Spontaneous
  Country: PL (occurrence: PL)
  Receive Date: 20200330
  Receipt Date: 20200421
  Transmission Date: 20200713
  Serious: Yes (Other)
  Sender: FDA-Public Use
  Company Number: PL-TOLMAR, INC.-20PL020824

PATIENT
  Sex: Female

DRUGS (1)
  1. ELIGARD [Suspect]
     Active Substance: LEUPROLIDE ACETATE
     Indication: PRODUCT USED FOR UNKNOWN INDICATION
     Dosage: UNK
     Route: 065
     Dates: start: 20200312, end: 20200312

REACTIONS (11)
  - Malaise [Recovering/Resolving]
  - Anosmia [Recovering/Resolving]
  - Chest discomfort [Recovering/Resolving]
  - Gastrointestinal pain [Recovering/Resolving]
  - Vomiting [Recovering/Resolving]
  - Occupational exposure to product [Unknown]
  - Dysgeusia [Recovering/Resolving]
  - Dizziness [Unknown]
  - Haemorrhage [Unknown]
  - Swelling face [Recovering/Resolving]
  - Eye pruritus [Recovering/Resolving]

NARRATIVE: CASE EVENT DATE: 20200312
